FAERS Safety Report 5907321-1 (Version None)
Quarter: 2008Q4

REPORT INFORMATION
  Report Type: 
  Country: None (occurrence: None)
  Receive Date: 20081003
  Receipt Date: 20080927
  Transmission Date: 20090506
  Serious: Yes (Death)
  Sender: FDA-Public Use
  Company Number: JP-ASTRAZENECA-2008AP07384

PATIENT
  Age: 19235 Day
  Sex: Female

DRUGS (10)
  1. SEROQUEL [Suspect]
     Indication: SCHIZOPHRENIA
     Route: 048
     Dates: start: 20080910
  2. PAXIL [Suspect]
     Indication: DEPRESSION
     Route: 048
     Dates: start: 20080917
  3. AMOBAN [Concomitant]
     Indication: SCHIZOPHRENIA
     Route: 048
     Dates: start: 20080825
  4. SILECE [Concomitant]
     Indication: SCHIZOPHRENIA
     Route: 048
     Dates: start: 20080825
  5. VEGETAMIN [Concomitant]
     Indication: SCHIZOPHRENIA
     Route: 048
     Dates: start: 20080825
  6. ALOSENN [Concomitant]
     Indication: CONSTIPATION
     Route: 048
     Dates: start: 20080820
  7. GASMOTIN [Concomitant]
     Indication: CONSTIPATION
     Route: 048
     Dates: start: 20080917
  8. MAGNESIUM OXIDE [Concomitant]
     Indication: CONSTIPATION
     Route: 048
     Dates: start: 20080917
  9. ARTANE [Concomitant]
     Indication: PARKINSONISM
     Route: 048
     Dates: start: 20080825
  10. LANDSEN [Concomitant]
     Indication: PARKINSONISM
     Route: 048
     Dates: start: 20080822

REACTIONS (1)
  - COMPLETED SUICIDE [None]
